FAERS Safety Report 5376811-5 (Version None)
Quarter: 2007Q2

REPORT INFORMATION
  Report Type: 
  Country: None (occurrence: None)
  Receive Date: 20070530
  Receipt Date: 20070214
  Transmission Date: 20071010
  Serious: No
  Sender: FDA-Public Use
  Company Number: 2007PV030109

PATIENT
  Sex: Female

DRUGS (5)
  1. BYETTA [Suspect]
     Indication: DIABETES MELLITUS NON-INSULIN-DEPENDENT
     Dosage: 10 MG;BID;SC : 5 MCG;BID;SC : 10 MCG;BID;SC : 5 MCG;BID;SC
     Route: 058
     Dates: start: 20060701, end: 20060101
  2. BYETTA [Suspect]
     Indication: DIABETES MELLITUS NON-INSULIN-DEPENDENT
     Dosage: 10 MG;BID;SC : 5 MCG;BID;SC : 10 MCG;BID;SC : 5 MCG;BID;SC
     Route: 058
     Dates: start: 20060101, end: 20061101
  3. BYETTA [Suspect]
     Indication: DIABETES MELLITUS NON-INSULIN-DEPENDENT
     Dosage: 10 MG;BID;SC : 5 MCG;BID;SC : 10 MCG;BID;SC : 5 MCG;BID;SC
     Route: 058
     Dates: start: 20070101, end: 20070204
  4. BYETTA [Suspect]
     Indication: DIABETES MELLITUS NON-INSULIN-DEPENDENT
     Dosage: 10 MG;BID;SC : 5 MCG;BID;SC : 10 MCG;BID;SC : 5 MCG;BID;SC
     Route: 058
     Dates: start: 20070205
  5. STEROID [Suspect]
     Dosage: ;PO
     Route: 048

REACTIONS (3)
  - ANOREXIA [None]
  - BLOOD GLUCOSE INCREASED [None]
  - TREMOR [None]
